FAERS Safety Report 12924805 (Version 1)
Quarter: 2016Q4

REPORT INFORMATION
  Report Type: Report from Study
  Country: CA (occurrence: CA)
  Receive Date: 20161108
  Receipt Date: 20161108
  Transmission Date: 20170207
  Serious: Yes (Other)
  Sender: FDA-Public Use
  Company Number: CA-JNJFOC-20161103479

PATIENT
  Sex: Female

DRUGS (1)
  1. REMICADE [Suspect]
     Active Substance: INFLIXIMAB
     Indication: CROHN^S DISEASE
     Dosage: THERAPY DURATION: 120 MINUTES
     Route: 042

REACTIONS (5)
  - Wound [Not Recovered/Not Resolved]
  - Product use issue [Unknown]
  - Wound haemorrhage [Not Recovered/Not Resolved]
  - Off label use [Unknown]
  - Nasal operation [Not Recovered/Not Resolved]

NARRATIVE: CASE EVENT DATE: 2016
